FAERS Safety Report 9618609 (Version 1)
Quarter: 2013Q4

REPORT INFORMATION
  Report Type: Spontaneous
  Country: US (occurrence: US)
  Receive Date: 20131014
  Receipt Date: 20131014
  Transmission Date: 20140711
  Serious: No
  Sender: FDA-Public Use
  Company Number: US-PFIZER INC-2013289297

PATIENT
  Sex: Female

DRUGS (1)
  1. ADVIL [Suspect]
     Indication: ARTHROPATHY
     Dosage: UNK

REACTIONS (3)
  - Extra dose administered [Unknown]
  - Blood pressure increased [Unknown]
  - Heart rate increased [Unknown]
